FAERS Safety Report 13781670 (Version 1)
Quarter: 2017Q3

REPORT INFORMATION
  Report Type: Spontaneous
  Country: PT (occurrence: PT)
  Receive Date: 20170724
  Receipt Date: 20170724
  Transmission Date: 20171127
  Serious: Yes (Life-Threatening, Other)
  Sender: FDA-Public Use
  Company Number: PT-PFIZER INC-3061931

PATIENT
  Age: 63 Year
  Sex: Female
  Weight: 67 kg

DRUGS (12)
  1. DOCETAXEL ACTAVIS [Suspect]
     Active Substance: DOCETAXEL
     Dosage: 75 MG/M2, FREQ: 1 WEEK, INTERVAL: 3
     Route: 042
     Dates: start: 20151020, end: 20151020
  2. METHYLPREDNISOLONE. [Concomitant]
     Active Substance: METHYLPREDNISOLONE
     Indication: ALLERGY PROPHYLAXIS
     Dosage: 125 MG, FREQ: 1 DAY, INTERVAL: 1
     Route: 042
     Dates: start: 20151110, end: 20151110
  3. DOCETAXEL ACTAVIS [Suspect]
     Active Substance: DOCETAXEL
     Indication: BREAST CANCER
     Dosage: 75 MG/M2, FREQ: 1 WEEK, INTERVAL: 3
     Route: 042
     Dates: start: 20151110, end: 20151110
  4. ONDANSETRON [Concomitant]
     Active Substance: ONDANSETRON
     Indication: VOMITING
     Dosage: 8 MG, FREQ: 1 DAY, INTERVAL: 1
     Route: 042
     Dates: start: 20151209, end: 20151209
  5. DOCETAXEL ACTAVIS [Suspect]
     Active Substance: DOCETAXEL
     Indication: BREAST CANCER
     Dosage: 160 MG, FREQ: 1 WEEK, INTERVAL: 3
     Route: 042
     Dates: start: 20151110, end: 20151201
  6. ONDANSETRON [Concomitant]
     Active Substance: ONDANSETRON
     Dosage: 8 MG, FREQ: 1 DAY, INTERVAL: 1
     Route: 042
     Dates: start: 20151110, end: 20151110
  7. DEXAMETHASONE. [Concomitant]
     Active Substance: DEXAMETHASONE
     Indication: VOMITING
     Dosage: 20 MG, FREQ: 1 DAY, INTERVAL: 1
     Route: 042
     Dates: start: 20151209, end: 20151209
  8. EPIRUBICIN [Concomitant]
     Active Substance: EPIRUBICIN
     Indication: BREAST CANCER
     Dosage: UNK
  9. PREDNISOLONE. [Concomitant]
     Active Substance: PREDNISOLONE
     Indication: ALLERGY PROPHYLAXIS
     Dosage: 20 MG, 3 TABLETS, FREQ: 1 DAY, INTERVAL:1
     Route: 048
     Dates: start: 20151209, end: 20151209
  10. PREDNISOLONE. [Concomitant]
     Active Substance: PREDNISOLONE
     Dosage: 60 MG, FREQ: 1 DAY, INTERVAL: 1
     Route: 048
     Dates: start: 20151109, end: 20151110
  11. DOCETAXEL HOSPIRA [Suspect]
     Active Substance: DOCETAXEL
     Indication: BREAST CANCER
     Dosage: 120 MG, 5.714MG/DAY, FREQ:1 WEEK, INTERVAL: 3
     Route: 042
     Dates: start: 20150929, end: 20150929
  12. DEXAMETHASONE. [Concomitant]
     Active Substance: DEXAMETHASONE
     Dosage: 20 MG, FREQ: 1 DAY, INTERVAL: 1
     Route: 042
     Dates: start: 20151110, end: 20151110

REACTIONS (15)
  - Throat tightness [Recovered/Resolved]
  - Erythema [Recovered/Resolved]
  - Anaphylactic reaction [Recovered/Resolved]
  - Anaphylactic reaction [Recovered/Resolved]
  - Back pain [Recovered/Resolved]
  - Dyspepsia [Recovered/Resolved]
  - Erythema [Recovered/Resolved]
  - Abdominal discomfort [Recovered/Resolved]
  - Hypersensitivity [Recovered/Resolved]
  - Erythema [Recovered/Resolved]
  - Dyspnoea [Recovered/Resolved]
  - Nausea [Recovered/Resolved]
  - Hypersensitivity [Recovered/Resolved]
  - Abdominal pain upper [Recovered/Resolved]
  - Erythema [Recovered/Resolved]

NARRATIVE: CASE EVENT DATE: 20150929
